FAERS Safety Report 8769363 (Version 2)
Quarter: 2012Q4

REPORT INFORMATION
  Report Type: 
  Country: DE (occurrence: DE)
  Receive Date: 20120829
  Receipt Date: 20121017
  Transmission Date: 20130627
  Serious: Yes (Death, Hospitalization, Other)
  Sender: FDA-Public Use
  Company Number: DE-ELI_LILLY_AND_COMPANY-DE201208008204

PATIENT
  Sex: Male

DRUGS (2)
  1. FORSTEO [Suspect]
     Indication: OSTEOPOROSIS
     Dosage: UNK, qd
     Route: 058
     Dates: start: 20120731
  2. CORTISON [Concomitant]

REACTIONS (8)
  - Death [Fatal]
  - Metastases to lung [Fatal]
  - Pain [Not Recovered/Not Resolved]
  - Lung disorder [Fatal]
  - Respiratory distress [Not Recovered/Not Resolved]
  - Lung disorder [Not Recovered/Not Resolved]
  - Fall [Recovered/Resolved]
  - Wound [Not Recovered/Not Resolved]
